FAERS Safety Report 23230773 (Version 1)
Quarter: 2023Q4

REPORT INFORMATION
  Report Type: Spontaneous
  Country: US (occurrence: None)
  Receive Date: 20231126
  Receipt Date: 20231126
  Transmission Date: 20240110
  Serious: Yes (Death, Hospitalization)
  Sender: FDA-Public Use
  Company Number: None

PATIENT
  Age: 67 Year
  Sex: Male
  Weight: 118 kg

DRUGS (2)
  1. ABIRATERONE ACETATE [Suspect]
     Active Substance: ABIRATERONE ACETATE
     Dates: end: 20230805
  2. PREDNISONE [Suspect]
     Active Substance: PREDNISONE
     Dates: end: 20230805

REACTIONS (6)
  - Dyspnoea [None]
  - Asthenia [None]
  - Dizziness [None]
  - Tachycardia [None]
  - Pulse absent [None]
  - White blood cell count increased [None]

NARRATIVE: CASE EVENT DATE: 20230806
